FAERS Safety Report 4757607-1 (Version None)
Quarter: 2005Q3

REPORT INFORMATION
  Report Type: 
  Country: None (occurrence: None)
  Receive Date: 20050831
  Receipt Date: 20050825
  Transmission Date: 20060218
  Serious: Yes (Hospitalization)
  Sender: FDA-Public Use
  Company Number: FR-SANOFI-SYNTHELABO-A02200502276

PATIENT
  Age: 72 Year
  Sex: Female

DRUGS (2)
  1. FASTURTEC [Suspect]
     Indication: TUMOUR LYSIS SYNDROME
     Route: 042
     Dates: start: 20050819, end: 20050819
  2. DEXAMETHASONE [Concomitant]
     Indication: PROPHYLAXIS OF NAUSEA AND VOMITING
     Dosage: UNK
     Route: 065
     Dates: start: 20050815, end: 20050818

REACTIONS (4)
  - AGITATION [None]
  - COMA [None]
  - ENCEPHALOPATHY [None]
  - HYPERAMMONAEMIA [None]
